FAERS Safety Report 8357180 (Version 3)
Quarter: 2013Q4

REPORT INFORMATION
  Report Type: Report from Study
  Country: US (occurrence: US)
  Receive Date: 20120127
  Receipt Date: 20131111
  Transmission Date: 20140711
  Serious: Yes (Death, Hospitalization)
  Sender: FDA-Public Use
  Company Number: US-ELI_LILLY_AND_COMPANY-US201201006077

PATIENT
  Sex: Female

DRUGS (2)
  1. SOMATROPIN [Suspect]
     Indication: BLOOD GROWTH HORMONE DECREASED
     Dosage: 0.3 DF, UNKNOWN
     Route: 065
  2. SOMATROPIN [Suspect]
     Indication: HYPOPITUITARISM
     Dosage: 6 MG, UNKNOWN
     Route: 065

REACTIONS (3)
  - Death [Fatal]
  - Urosepsis [Unknown]
  - Drug dose omission [Unknown]
